FAERS Safety Report 6484603-9 (Version None)
Quarter: 2009Q4

REPORT INFORMATION
  Report Type: 
  Country: None (occurrence: None)
  Receive Date: 20091209
  Receipt Date: 20091203
  Transmission Date: 20100525
  Serious: Yes (Other)
  Sender: FDA-Public Use
  Company Number: BR-ABBOTT-09P-020-0612254-00

PATIENT
  Sex: Female

DRUGS (6)
  1. HUMIRA [Suspect]
     Indication: RHEUMATOID ARTHRITIS
     Route: 058
     Dates: start: 20040101, end: 20090301
  2. HUMIRA [Suspect]
     Route: 058
  3. CELECOXIB [Concomitant]
     Indication: PAIN
     Route: 048
     Dates: start: 20040101
  4. METHOTREXATE [Concomitant]
     Indication: PAIN
     Route: 048
     Dates: start: 20040101
  5. CALTRATE 600 + D [Concomitant]
     Indication: BONE DISORDER
     Route: 048
     Dates: start: 20040101
  6. CORUS [Concomitant]
     Indication: HYPERTENSION
     Route: 048
     Dates: start: 20080101

REACTIONS (1)
  - FOOT DEFORMITY [None]
